FAERS Safety Report 17297525 (Version 1)
Quarter: 2020Q1

REPORT INFORMATION
  Report Type: Spontaneous
  Country: US (occurrence: US)
  Receive Date: 20200122
  Receipt Date: 20200122
  Transmission Date: 20200409
  Serious: Yes (Life-Threatening, Hospitalization, Other)
  Sender: FDA-Public Use
  Company Number: US-SCIEGEN PHARMACEUTICALS INC-2020SCILIT00009

PATIENT
  Age: 45 Year
  Sex: Female

DRUGS (11)
  1. VANCOMYCIN [Interacting]
     Active Substance: VANCOMYCIN
  2. PRAZOSIN. [Concomitant]
     Active Substance: PRAZOSIN
  3. METRONIDAZOLE. [Interacting]
     Active Substance: METRONIDAZOLE
  4. DEXAMETHASONE. [Interacting]
     Active Substance: DEXAMETHASONE
  5. LAMOTRIGINE TABLETS [Suspect]
     Active Substance: LAMOTRIGINE
  6. AMLODIPINE [Concomitant]
     Active Substance: AMLODIPINE BESYLATE
  7. DULOXETINE. [Concomitant]
     Active Substance: DULOXETINE
  8. CLONAZEPAM. [Concomitant]
     Active Substance: CLONAZEPAM
  9. ETOPOSIDE. [Interacting]
     Active Substance: ETOPOSIDE
  10. CHOLECALCIFEROL [Concomitant]
     Active Substance: CHOLECALCIFEROL
  11. CEFTAZIDIME. [Interacting]
     Active Substance: CEFTAZIDIME

REACTIONS (4)
  - Stress cardiomyopathy [Recovered/Resolved]
  - Sepsis [Recovered/Resolved]
  - Haemophagocytic lymphohistiocytosis [Recovered/Resolved]
  - Multiple organ dysfunction syndrome [Recovered/Resolved]
